FAERS Safety Report 8266389-0 (Version None)
Quarter: 2012Q2

REPORT INFORMATION
  Report Type: 
  Country: None (occurrence: None)
  Receive Date: 20120406
  Receipt Date: 20120327
  Transmission Date: 20120825
  Serious: Yes (Life-Threatening)
  Sender: FDA-Public Use
  Company Number: FR-ROCHE-1045685

PATIENT
  Sex: Female
  Weight: 70 kg

DRUGS (2)
  1. ROFERON-A [Suspect]
     Indication: HEPATITIS B
     Dosage: 18000 IU
     Route: 058
  2. ROFERON-A [Suspect]
     Indication: HEPATITIS D

REACTIONS (2)
  - COMA [None]
  - ENCEPHALOPATHY [None]
